FAERS Safety Report 9620226 (Version 2)
Quarter: 2013Q4

REPORT INFORMATION
  Report Type: Spontaneous
  Country: US (occurrence: US)
  Receive Date: 20131014
  Receipt Date: 20131014
  Transmission Date: 20140711
  Serious: No
  Sender: FDA-Public Use
  Company Number: US-ALLERGAN-1312100US

PATIENT
  Age: 83 Year
  Sex: Female

DRUGS (8)
  1. ALPHAGAN P [Suspect]
     Indication: GLAUCOMA
     Dosage: 2 GTT, BID
     Route: 047
     Dates: start: 201206
  2. COSOPT [Concomitant]
     Indication: GLAUCOMA
     Dosage: 2 GTT, QAM
     Route: 047
  3. LUMIGAN [Concomitant]
     Indication: GLAUCOMA
     Dosage: 2 GTT, QHS
     Route: 047
  4. SYSTANE [Concomitant]
     Indication: DRY EYE
     Route: 047
  5. ATENOLOL [Concomitant]
     Indication: HYPERTENSION
     Dosage: 0.25 MG, QD
     Route: 048
  6. METFORMIN [Concomitant]
     Indication: GLUCOSE TOLERANCE IMPAIRED
     Dosage: 500 MG, QD
     Route: 048
  7. AMILORIDE HCL/HYDROCHLOORTHIAZIDE [Concomitant]
     Indication: PRODUCT USED FOR UNKNOWN INDICATION
     Route: 048
  8. POTASSIUM [Concomitant]
     Indication: PRODUCT USED FOR UNKNOWN INDICATION
     Route: 048

REACTIONS (3)
  - Balance disorder [Unknown]
  - Hypertension [Unknown]
  - Inappropriate schedule of drug administration [Unknown]
